FAERS Safety Report 4650736-2 (Version None)
Quarter: 2005Q2

REPORT INFORMATION
  Report Type: 
  Country: None (occurrence: None)
  Receive Date: 20050503
  Receipt Date: 20040826
  Transmission Date: 20051028
  Serious: Yes (Hospitalization)
  Sender: FDA-Public Use
  Company Number: US-2004-BP-07272BP

PATIENT
  Sex: Female

DRUGS (2)
  1. CATAPRES-TTS-1 [Suspect]
     Indication: HYPERTENSION
     Route: 061
     Dates: start: 20040725
  2. CATAPRES-TTS-1 [Suspect]
     Indication: HOT FLUSH

REACTIONS (4)
  - ABDOMINAL PAIN [None]
  - ANAEMIA [None]
  - VAGINAL DISCHARGE [None]
  - VOMITING [None]
